FAERS Safety Report 7640625-3 (Version None)
Quarter: 2011Q3

REPORT INFORMATION
  Report Type: 
  Country: None (occurrence: None)
  Receive Date: 20110721
  Receipt Date: 20110707
  Transmission Date: 20111222
  Serious: Yes (Other)
  Sender: FDA-Public Use
  Company Number: 2011AP001428

PATIENT
  Age: 44 Year
  Sex: Male

DRUGS (3)
  1. PREDNISOLONE [Concomitant]
  2. MYCOPHENOLATE MOFETIL [Suspect]
     Indication: IMMUNOSUPPRESSION
     Dosage: 2 G, QD,
     Dates: start: 20060701
  3. TACROLIMUS [Concomitant]

REACTIONS (2)
  - BRONCHIECTASIS [None]
  - HYPOGAMMAGLOBULINAEMIA [None]
